FAERS Safety Report 7371431-5 (Version None)
Quarter: 2011Q1

REPORT INFORMATION
  Report Type: 
  Country: None (occurrence: None)
  Receive Date: 20110324
  Receipt Date: 20110310
  Transmission Date: 20110831
  Serious: Yes (Other)
  Sender: FDA-Public Use
  Company Number: GB-RANBAXY-2011R1-43012

PATIENT
  Age: 42 Year
  Sex: Female

DRUGS (3)
  1. METFORMIN [Suspect]
     Indication: GESTATIONAL DIABETES
     Dosage: 500 MG,3/ DAYS
     Route: 065
  2. BETAMETHASONE DIPROPIONATE [Suspect]
     Indication: PRENATAL CARE
     Dosage: 12 MG, 1/ DAYS
     Route: 042
  3. INSULIN [Suspect]
     Indication: GESTATIONAL DIABETES
     Dosage: 8 DF, 1/ DAYS
     Route: 065

REACTIONS (5)
  - DRUG EXPOSURE DURING PREGNANCY [None]
  - VOMITING [None]
  - DIABETIC KETOACIDOSIS [None]
  - DYSPNOEA [None]
  - NAUSEA [None]
